FAERS Safety Report 7319985-9 (Version None)
Quarter: 2011Q1

REPORT INFORMATION
  Report Type: 
  Country: None (occurrence: None)
  Receive Date: 20110228
  Receipt Date: 20110228
  Transmission Date: 20110831
  Serious: Yes (Hospitalization)
  Sender: FDA-Public Use
  Company Number: HU-ELI_LILLY_AND_COMPANY-HU201007003045

PATIENT
  Sex: Male
  Weight: 65 kg

DRUGS (19)
  1. NECITUMUMAB (11F8) (LY3012211) [Suspect]
     Dates: start: 20100722
  2. CISPLATIN [Suspect]
     Indication: NON-SMALL CELL LUNG CANCER
     Dosage: 128 MG, UNK
     Dates: start: 20100618, end: 20100709
  3. AMBROXOL [Concomitant]
  4. PEMETREXED [Suspect]
     Indication: NON-SMALL CELL LUNG CANCER
     Dosage: 800 MG, OTHER
     Route: 042
     Dates: start: 20100618, end: 20100709
  5. MEGACE [Concomitant]
     Indication: DECREASED APPETITE
     Dates: start: 20100625, end: 20100630
  6. DALACIN                            /00166002/ [Concomitant]
     Indication: RASH
     Dates: start: 20100625
  7. CISPLATIN [Suspect]
     Dosage: REDUCED DOSE, UNK
     Route: 042
     Dates: start: 20100722
  8. QUAMATEL [Concomitant]
     Indication: PROPHYLAXIS AGAINST GASTROINTESTINAL ULCER
     Dates: start: 20100630
  9. PEMETREXED [Suspect]
     Dosage: REDUCED DOSEUNK, UNK
     Route: 042
     Dates: start: 20100722
  10. SERETIDE [Concomitant]
  11. THEOSPIREX [Concomitant]
  12. SPIRIVA [Concomitant]
  13. VENTOLIN                                /SCH/ [Concomitant]
  14. TIAPRIDAL [Concomitant]
  15. VITAMIN B-12 [Concomitant]
     Indication: PREMEDICATION
     Dates: start: 20100610
  16. NECITUMUMAB (11F8) (LY3012211) [Suspect]
     Indication: NON-SMALL CELL LUNG CANCER
     Dosage: 800 MG, OTHER
     Route: 042
     Dates: start: 20100618, end: 20100709
  17. ANDAXIN [Concomitant]
  18. FOLIC ACID [Concomitant]
     Indication: PREMEDICATION
     Dates: start: 20100610
  19. ELOCON [Concomitant]
     Indication: RASH
     Dates: start: 20100625

REACTIONS (2)
  - ILEUS PARALYTIC [None]
  - RENAL FAILURE [None]
